FAERS Safety Report 5378877-5 (Version None)
Quarter: 2007Q3

REPORT INFORMATION
  Report Type: 
  Country: None (occurrence: None)
  Receive Date: 20070705
  Receipt Date: 20070626
  Transmission Date: 20080115
  Serious: Yes (Other)
  Sender: FDA-Public Use
  Company Number: FR-ELI_LILLY_AND_COMPANY-FR200704002547

PATIENT
  Age: 50 Year
  Sex: Female

DRUGS (8)
  1. FORTEO [Suspect]
     Indication: OSTEOPOROSIS
     Dosage: 20 UG, DAILY (1/D)
     Route: 058
     Dates: start: 20051101
  2. CACIT D3 [Concomitant]
     Indication: OSTEOPOROSIS
  3. DAFALGAN [Concomitant]
     Indication: PAIN
  4. MYOLASTAN [Concomitant]
     Indication: PAIN
  5. STEROGYL [Concomitant]
     Dates: start: 20070205
  6. AVLOCARDYL [Concomitant]
     Indication: TACHYCARDIA
  7. ACETAMINOPHEN AND TRAMADOL HCL [Concomitant]
  8. ACTISKENAN [Concomitant]

REACTIONS (1)
  - SQUAMOUS CELL CARCINOMA [None]
